FAERS Safety Report 5023445-8 (Version None)
Quarter: 2006Q2

REPORT INFORMATION
  Report Type: 
  Country: None (occurrence: None)
  Receive Date: 20060606
  Receipt Date: 20060524
  Transmission Date: 20061013
  Serious: Yes (Hospitalization)
  Sender: FDA-Public Use
  Company Number: CIP06001206

PATIENT
  Age: 74 Year
  Sex: Female

DRUGS (10)
  1. FURADANTIN [Suspect]
     Indication: ANTIBIOTIC PROPHYLAXIS
     Dosage: 2 DF DAILY AS NEEDED, ORAL
     Route: 048
     Dates: end: 20060425
  2. PRESTOLE (TRIAMTERENE, HYDROCHLOROTHIAZIDE) [Suspect]
     Dosage: 1 DF DAILY, ORAL
     Route: 048
     Dates: end: 20060425
  3. KARDEGIC /FRA/(ACETYLSALICYLATE LYSINE) [Concomitant]
  4. HYPERIUM (RILMENIDINE) [Concomitant]
  5. VALSARTAN [Concomitant]
  6. TRASICOR (OXPRENOLOL HYDROCHLORIDE) [Concomitant]
  7. TANAKAN (GINKGO BILOBA EXTRACT) [Concomitant]
  8. DIFRAREL (BETACAROTENE, VACCINIUM MYRTILLUS) [Concomitant]
  9. VASTAREL ^BIOPHARMA^ (TRIMETAZIDINE HYDROCHLORIDE) [Concomitant]
  10. DAFLON (DIOSMIN) [Concomitant]

REACTIONS (3)
  - LICHENOID KERATOSIS [None]
  - RASH PAPULAR [None]
  - RASH PRURITIC [None]
